FAERS Safety Report 15317489 (Version 1)
Quarter: 2018Q3

REPORT INFORMATION
  Report Type: Spontaneous
  Country: US (occurrence: US)
  Receive Date: 20180824
  Receipt Date: 20180824
  Transmission Date: 20181010
  Serious: No
  Sender: FDA-Public Use
  Company Number: PHHY2018US053872

PATIENT
  Age: 6 Year
  Sex: Male

DRUGS (4)
  1. CLOBETASOL [Suspect]
     Active Substance: CLOBETASOL
     Indication: ALOPECIA AREATA
     Route: 065
  2. ANTHRALIN [Suspect]
     Active Substance: ANTHRALIN
     Indication: ALOPECIA AREATA
     Route: 065
  3. FLUOCINONIDE. [Suspect]
     Active Substance: FLUOCINONIDE
     Indication: ALOPECIA AREATA
     Route: 065
  4. HYDROCORTISONE. [Suspect]
     Active Substance: HYDROCORTISONE
     Indication: ALOPECIA AREATA
     Route: 065

REACTIONS (2)
  - Product use in unapproved indication [Unknown]
  - Treatment failure [Unknown]
